FAERS Safety Report 4734061-7 (Version None)
Quarter: 2005Q3

REPORT INFORMATION
  Report Type: 
  Country: None (occurrence: None)
  Receive Date: 20050804
  Receipt Date: 20050801
  Transmission Date: 20060218
  Serious: Yes (Hospitalization)
  Sender: FDA-Public Use
  Company Number: DK-RB-1932-2005

PATIENT
  Sex: Female

DRUGS (7)
  1. ABCIXIMAB [Suspect]
     Indication: ISCHAEMIC STROKE
     Dosage: 1 IN 12 HOUR
     Route: 042
     Dates: start: 20050622, end: 20050622
  2. MEDICINALPRODUCT NOT SPECIFIED BY SENDER [Suspect]
     Indication: ISCHAEMIC STROKE
     Dosage: 8.4 ML 1 IN 1 TOTAL
     Route: 042
     Dates: start: 20050622, end: 20050622
  3. MEDICINALPRODUCT NOT SPECIFIED BY SENDER [Suspect]
     Dosage: 2.47 ML, 1 IN 12 HOUR
     Route: 042
     Dates: start: 20050622, end: 20050622
  4. AMPICILLIN SODIUM AND SULBACTAM SODIUM [Concomitant]
     Indication: DRUG USE FOR UNKNOWN INDICATION
     Route: 065
     Dates: start: 20050622
  5. BUPRENORPHINE [Concomitant]
     Indication: DRUG USE FOR UNKNOWN INDICATION
     Route: 065
     Dates: start: 20050627
  6. ASPIRIN [Concomitant]
     Indication: DRUG USE FOR UNKNOWN INDICATION
     Route: 065
     Dates: start: 20050624
  7. HEPARIN-FRACTION, SODIUM SALT [Concomitant]
     Indication: DRUG USE FOR UNKNOWN INDICATION
     Route: 065
     Dates: start: 20050624

REACTIONS (7)
  - CEREBROVASCULAR ACCIDENT [None]
  - DISEASE PROGRESSION [None]
  - FALL [None]
  - GENERAL PHYSICAL HEALTH DETERIORATION [None]
  - LACERATION [None]
  - SKIN LACERATION [None]
  - SOMNOLENCE [None]
